FAERS Safety Report 6603271-6 (Version None)
Quarter: 2010Q1

REPORT INFORMATION
  Report Type: 
  Country: None (occurrence: None)
  Receive Date: 20100218
  Receipt Date: 20100212
  Transmission Date: 20100710
  Serious: Yes (Hospitalization)
  Sender: FDA-Public Use
  Company Number: 006858

PATIENT
  Age: 43 Year
  Sex: Female

DRUGS (6)
  1. KEPPRA [Suspect]
     Indication: CONVULSION
     Dosage: 1000 MG BID ORAL
     Route: 048
     Dates: start: 20090220, end: 20091202
  2. STILNOX /00914901/ (STILNOX) [Suspect]
     Indication: DEPRESSION
     Dosage: 1 DF ORAL
     Route: 048
     Dates: start: 20091123, end: 20091204
  3. URBANYL (URBANYL) (NOT SPECIFIED) [Suspect]
     Indication: DEPRESSION
     Dosage: 20 MG BID ORAL
     Route: 048
     Dates: start: 20091127, end: 20091204
  4. KALETRA [Concomitant]
  5. LEVOTHYROX [Concomitant]
  6. DEPAKENE [Concomitant]

REACTIONS (3)
  - CONFUSIONAL STATE [None]
  - DISORIENTATION [None]
  - UNEVALUABLE EVENT [None]
